FAERS Safety Report 4785438-5 (Version None)
Quarter: 2005Q3

REPORT INFORMATION
  Report Type: 
  Country: None (occurrence: None)
  Receive Date: 20050926
  Receipt Date: 20050913
  Transmission Date: 20060218
  Serious: Yes (Death)
  Sender: FDA-Public Use
  Company Number: 2005BH001750

PATIENT
  Age: 2 Year
  Sex: Male

DRUGS (2)
  1. RECOMBINATE [Suspect]
     Indication: FACTOR VIII DEFICIENCY
     Dosage: IV
     Route: 042
  2. ANTIBIOTICS [Concomitant]

REACTIONS (3)
  - BRAIN DAMAGE [None]
  - CONVULSION [None]
  - LOSS OF CONSCIOUSNESS [None]
